FAERS Safety Report 16549602 (Version 1)
Quarter: 2019Q3

REPORT INFORMATION
  Report Type: Spontaneous
  Country: US (occurrence: US)
  Receive Date: 20190710
  Receipt Date: 20190710
  Transmission Date: 20191004
  Serious: No
  Sender: FDA-Public Use
  Company Number: US-APOTEX-2019AP017351

PATIENT
  Sex: Female

DRUGS (17)
  1. AZELASTINE. [Concomitant]
     Active Substance: AZELASTINE HYDROCHLORIDE
     Indication: UPPER-AIRWAY COUGH SYNDROME
     Dosage: UNK, QD 1 SPRAY EACH NOSTRIL ONCE A DAY AT NIGHT
     Route: 065
  2. ACAI                               /06686501/ [Concomitant]
     Indication: ANTIOXIDANT THERAPY
     Dosage: 25 MG, BID
     Route: 065
  3. FLUTICASONE. [Suspect]
     Active Substance: FLUTICASONE
     Indication: UPPER-AIRWAY COUGH SYNDROME
     Dosage: UNK, QD, 50 MCG/15ML / 2 SPRAY EACH NOSTRIL, ONCE A DAY AT NIGHT
     Route: 045
     Dates: end: 20190609
  4. ALA                                /00213801/ [Concomitant]
     Indication: ANTIOXIDANT THERAPY
     Dosage: UNK, QD, AT DINNER TIME, 1 AND A HALF YEAR
     Route: 065
  5. GARLIC                             /01570501/ [Concomitant]
     Active Substance: GARLIC
     Indication: CARDIAC DISORDER
     Dosage: UNK, QD, AT NIGHT
     Route: 065
  6. MULTIVITAMINS                      /00116001/ [Concomitant]
     Active Substance: VITAMINS
     Indication: PRODUCT USED FOR UNKNOWN INDICATION
     Dosage: UNK, QD
     Route: 065
  7. ACIDOPHILUS [Concomitant]
     Active Substance: LACTOBACILLUS ACIDOPHILUS
     Indication: DYSPEPSIA
     Dosage: UNK, QD, 5 TO 6 YEARS
     Route: 065
  8. CHROMIUM [Concomitant]
     Active Substance: CHROMIC CHLORIDE\CHROMIUM
     Indication: METABOLIC DISORDER
     Dosage: UNK, 1 OR 2 TIMES A WEEK
     Route: 065
  9. CRANBERRY + VITAMIN C              /06356601/ [Concomitant]
     Indication: URINARY TRACT INFECTION
     Dosage: UNK, QD, AT NIGHT
     Route: 065
  10. CETIRIZINE [Concomitant]
     Active Substance: CETIRIZINE HYDROCHLORIDE
     Indication: UPPER-AIRWAY COUGH SYNDROME
     Dosage: 10 MG, QD
     Route: 065
  11. BEETROOT [Concomitant]
     Indication: GENERAL PHYSICAL CONDITION
     Dosage: UNK, BID, IN THE MORNING, SINCE 1 AND HALF YEARS
     Route: 065
  12. CINNAMON                           /01647501/ [Concomitant]
     Active Substance: CINNAMON
     Indication: BLOOD PRESSURE MANAGEMENT
  13. VITAMIN C [Concomitant]
     Active Substance: ASCORBIC ACID
     Indication: IMMUNE SYSTEM DISORDER
     Dosage: UNK, 3 TIMES A WEEK EVERY MORNING, 7 TO 8 YEARS
     Route: 065
  14. ASHWAGANDHA                        /01660201/ [Concomitant]
     Active Substance: HERBALS
     Indication: IMMUNE SYSTEM DISORDER
     Dosage: UNK, QD, AT DINNER TIME, 2 TO 3 MONTH AGO
     Route: 065
  15. CINNAMON                           /01647501/ [Concomitant]
     Active Substance: CINNAMON
     Indication: METABOLIC DISORDER
     Dosage: UNK, 1 OR 2 TIMES A WEEK,
     Route: 065
  16. RHODIOLA EXTRACT                   /02220301/ [Concomitant]
     Indication: GENERAL PHYSICAL CONDITION
     Dosage: UNK, QD, MORNING, 1 MONTH AND A HALF AGO
     Route: 065
  17. CHROMIUM [Concomitant]
     Active Substance: CHROMIC CHLORIDE\CHROMIUM
     Indication: BLOOD PRESSURE MANAGEMENT

REACTIONS (4)
  - Candida infection [Not Recovered/Not Resolved]
  - Cough [Not Recovered/Not Resolved]
  - Condition aggravated [Not Recovered/Not Resolved]
  - Oropharyngeal pain [Not Recovered/Not Resolved]
